FAERS Safety Report 20980886 (Version 2)
Quarter: 2022Q4

REPORT INFORMATION
  Report Type: Report from Study
  Country: US (occurrence: US)
  Receive Date: 20220620
  Receipt Date: 20221025
  Transmission Date: 20230113
  Serious: Yes (Hospitalization)
  Sender: FDA-Public Use
  Company Number: US-BAYER-2022A083766

PATIENT
  Age: 80 Year
  Sex: Male

DRUGS (2)
  1. NEXAVAR [Suspect]
     Active Substance: SORAFENIB
     Indication: Hepatocellular carcinoma
     Dosage: 200 MG, QD
     Route: 048
     Dates: start: 20180924
  2. NEXAVAR [Suspect]
     Active Substance: SORAFENIB
     Indication: Hepatocellular carcinoma
     Dosage: UNK (CHANGED DOSE)
     Route: 048

REACTIONS (2)
  - Hospitalisation [None]
  - Off label use [None]

NARRATIVE: CASE EVENT DATE: 20180924
